FAERS Safety Report 5814604-2 (Version None)
Quarter: 2008Q3

REPORT INFORMATION
  Report Type: 
  Country: None (occurrence: None)
  Receive Date: 20080718
  Receipt Date: 20071031
  Transmission Date: 20090109
  Serious: No
  Sender: FDA-Public Use
  Company Number: US-KINGPHARMUSA00001-K200701422

PATIENT

DRUGS (9)
  1. LEVOXYL [Suspect]
     Indication: HYPOTHYROIDISM
     Dosage: 112 MCG, QD
     Route: 048
  2. LEVOXYL [Suspect]
     Dosage: 200 MCG, QD
     Route: 048
  3. LEVOXYL [Suspect]
     Dosage: 100 MCG, QD
     Route: 048
  4. LEVOXYL [Suspect]
     Dosage: 112 MCG, QD
     Route: 048
  5. COZAAR [Suspect]
     Indication: RENAL DISORDER
     Dosage: 50 MG, BID
     Route: 048
     Dates: start: 20020101
  6. GARLIC /01570501/ [Concomitant]
     Indication: SUPPLEMENTATION THERAPY
     Route: 048
  7. VITAMINS WITH MINERALS [Concomitant]
     Indication: SUPPLEMENTATION THERAPY
     Route: 048
  8. IPRATROPIUM BROMIDE [Concomitant]
     Indication: ASTHMA
  9. OXYGEN [Concomitant]
     Indication: ASTHMA
     Dosage: 0-2
     Dates: start: 20060101

REACTIONS (5)
  - DYSPNOEA [None]
  - FATIGUE [None]
  - PALPITATIONS [None]
  - SOMNOLENCE [None]
  - WEIGHT INCREASED [None]
